FAERS Safety Report 7118357-X (Version None)
Quarter: 2010Q4

REPORT INFORMATION
  Report Type: 
  Country: None (occurrence: None)
  Receive Date: 20101123
  Receipt Date: 20101118
  Transmission Date: 20110411
  Serious: Yes (Life-Threatening, Hospitalization)
  Sender: FDA-Public Use
  Company Number: JP-BAYER-201015803BYL

PATIENT
  Age: 61 Year
  Sex: Male

DRUGS (1)
  1. NEXAVAR [Suspect]
     Indication: HEPATIC NEOPLASM MALIGNANT
     Dosage: TOTAL DAILY DOSE: 800 MG  UNIT DOSE: 200 MG
     Route: 048
     Dates: start: 20101102, end: 20101107

REACTIONS (5)
  - DISSEMINATED INTRAVASCULAR COAGULATION [None]
  - ENTEROCOLITIS [None]
  - EOSINOPHIL COUNT INCREASED [None]
  - PLATELET COUNT DECREASED [None]
  - PYREXIA [None]
